FAERS Safety Report 5847671-0 (Version None)
Quarter: 2008Q3

REPORT INFORMATION
  Report Type: 
  Country: None (occurrence: None)
  Receive Date: 20080815
  Receipt Date: 20080815
  Transmission Date: 20090109
  Serious: No
  Sender: FDA-Public Use
  Company Number: None

PATIENT
  Sex: Female
  Weight: 61.2356 kg

DRUGS (1)
  1. RECLAST [Suspect]
     Indication: OSTEOPOROSIS
     Dosage: ONCE
     Dates: start: 20080529

REACTIONS (5)
  - CHILLS [None]
  - MUSCLE SPASMS [None]
  - NAUSEA [None]
  - ORTHOSIS USER [None]
  - PYREXIA [None]
